FAERS Safety Report 8791993 (Version 4)
Quarter: 2018Q4

REPORT INFORMATION
  Report Type: Spontaneous
  Country: FR (occurrence: FR)
  Receive Date: 20120918
  Receipt Date: 20181129
  Transmission Date: 20190205
  Serious: Yes (Hospitalization, Other)
  Sender: FDA-Public Use
  Company Number: FR-PFIZER INC-2012223551

PATIENT
  Age: 65 Year
  Sex: Female
  Weight: 98 kg

DRUGS (9)
  1. AMLODIPINE [Concomitant]
     Active Substance: AMLODIPINE BESYLATE
     Dosage: 10 MG, 1X/DAY
  2. ZYVOXID [Suspect]
     Active Substance: LINEZOLID
     Indication: ARTHRITIS
     Dosage: 600 MG, 3X/DAY
     Route: 042
     Dates: start: 20120505, end: 20120507
  3. ACUPAN [Concomitant]
     Active Substance: NEFOPAM HYDROCHLORIDE
     Dosage: UNK
  4. RIFADINE [Suspect]
     Active Substance: RIFAMPIN
     Indication: ARTHRITIS
     Dosage: 600 MG, 3X/DAY
     Route: 048
     Dates: start: 20120505, end: 20120529
  5. INEXIUM [Concomitant]
     Active Substance: ESOMEPRAZOLE
     Dosage: 20 MG, 1X/DAY
  6. CRESTOR [Concomitant]
     Active Substance: ROSUVASTATIN CALCIUM
     Dosage: 5 MG, 1X/DAY
  7. COAPROVEL [Concomitant]
     Active Substance: HYDROCHLOROTHIAZIDE\IRBESARTAN
     Dosage: 1 DF, 1X/DAY
  8. PARACETAMOL [Concomitant]
     Active Substance: ACETAMINOPHEN
  9. ZYVOXID [Suspect]
     Active Substance: LINEZOLID
     Indication: ARTHRITIS
     Dosage: 600 MG, 2X/DAY
     Route: 048
     Dates: start: 20120508, end: 20120529

REACTIONS (4)
  - Hepatocellular injury [Recovered/Resolved]
  - Gastrointestinal disorder [Recovered/Resolved]
  - Lactic acidosis [Recovered/Resolved]
  - Asthenia [Recovering/Resolving]

NARRATIVE: CASE EVENT DATE: 20120515
